FAERS Safety Report 12641485 (Version 1)
Quarter: 2016Q3

REPORT INFORMATION
  Report Type: Spontaneous
  Country: US (occurrence: US)
  Receive Date: 20160810
  Receipt Date: 20160810
  Transmission Date: 20161109
  Serious: Yes (Other)
  Sender: FDA-Public Use
  Company Number: US-STANDARD HOMEOPATHIC COMPANY-1056167

PATIENT
  Age: 30 Month
  Sex: Male

DRUGS (1)
  1. 4 KIDS COMPLETE COLD AND MUCUS [Suspect]
     Active Substance: BRYONIA ALBA ROOT\CALCIUM SULFIDE\EUPHRASIA STRICTA\PHOSPHORUS\PULSATILLA VULGARIS\RUMEX CRISPUS ROOT\SILICON DIOXIDE\SODIUM CHLORIDE
     Indication: NASOPHARYNGITIS
     Route: 048
     Dates: start: 20160730, end: 20160730

REACTIONS (2)
  - Tremor [Unknown]
  - Pyrexia [Unknown]

NARRATIVE: CASE EVENT DATE: 20160730
